FAERS Safety Report 6703918-X (Version None)
Quarter: 2010Q2

REPORT INFORMATION
  Report Type: 
  Country: None (occurrence: None)
  Receive Date: 20100430
  Receipt Date: 20100427
  Transmission Date: 20101027
  Serious: Yes (Death)
  Sender: FDA-Public Use
  Company Number: CN-ROCHE-699578

PATIENT
  Sex: Female

DRUGS (2)
  1. MYCOPHENOLATE MOFETIL [Suspect]
     Indication: RENAL TRANSPLANT
     Dosage: 500MG IN THE MORNING AND 500MG IN THE EVENING.
     Route: 048
  2. SANDIMMUNE [Concomitant]
     Indication: RENAL TRANSPLANT
     Route: 065

REACTIONS (1)
  - DEATH [None]
